FAERS Safety Report 22136926 (Version 1)
Quarter: 2023Q1

REPORT INFORMATION
  Report Type: Spontaneous
  Country: GB (occurrence: GB)
  Receive Date: 20230324
  Receipt Date: 20230324
  Transmission Date: 20230418
  Serious: Yes (Hospitalization, Other)
  Sender: FDA-Public Use
  Company Number: None

PATIENT
  Age: 66 Year
  Sex: Female

DRUGS (16)
  1. MORPHINE SULFATE [Suspect]
     Active Substance: MORPHINE SULFATE
     Indication: Pain
     Dosage: 10MG/5 ML
     Route: 048
  2. CARBOPLATIN [Suspect]
     Active Substance: CARBOPLATIN
     Indication: Endometrial cancer
     Dosage: CYCLE 1 OF 3-WEEKLY REGIMEN
     Route: 065
     Dates: start: 20210301
  3. DEXAMETHASONE [Suspect]
     Active Substance: DEXAMETHASONE
     Indication: Prophylaxis of nausea and vomiting
     Dosage: 4 MG, BID
     Route: 048
     Dates: start: 20210302, end: 20210303
  4. DEXTROSE [Suspect]
     Active Substance: DEXTROSE
     Indication: Medication dilution
     Dosage: 500 ML
     Route: 065
     Dates: start: 20210301
  5. METOCLOPRAMIDE [Suspect]
     Active Substance: METOCLOPRAMIDE
     Indication: Prophylaxis of nausea and vomiting
     Dosage: UPTO 3 TIMES A DAY, AS REQUIRED
     Route: 048
     Dates: start: 20210301
  6. ONDANSETRON [Suspect]
     Active Substance: ONDANSETRON
     Indication: Prophylaxis of nausea and vomiting
     Dosage: 8 MG, BID
     Route: 048
     Dates: start: 20210302, end: 20210303
  7. PACLITAXEL [Suspect]
     Active Substance: PACLITAXEL
     Indication: Endometrial cancer
     Dosage: CYCLE 1 OF 3-WEEKLY REGIMEN
     Route: 065
     Dates: start: 20210301
  8. ACETAMINOPHEN [Suspect]
     Active Substance: ACETAMINOPHEN
     Indication: Pain
     Dosage: UPTO FOUR TIMES, AS REQUIRED
     Route: 048
  9. SODIUM CHLORIDE [Suspect]
     Active Substance: SODIUM CHLORIDE
     Indication: Medication dilution
     Dosage: 306 MILLILITER
     Route: 065
     Dates: start: 20210301
  10. MORPHINE SULFATE [Suspect]
     Active Substance: MORPHINE SULFATE
     Indication: Pain
     Dosage: 40 MG, BID (MODIFIED RELEASE CAPSULES)
     Route: 048
  11. APIXABAN [Concomitant]
     Active Substance: APIXABAN
     Indication: Anticoagulant therapy
     Dosage: 5 MG, BID
     Route: 048
  12. CYANOCOBALAMIN [Concomitant]
     Active Substance: CYANOCOBALAMIN
     Indication: Vitamin B12 deficiency
     Dosage: 1 DF, QD
     Route: 048
  13. DIAZEPAM [Concomitant]
     Active Substance: DIAZEPAM
     Indication: Anxiety
     Dosage: UPTO THREE TIMES A DAY, AS REQUIRED.
     Route: 048
  14. FOLIC ACID [Concomitant]
     Active Substance: FOLIC ACID
     Indication: Folate deficiency
     Dosage: 5 MILLIGRAM
     Route: 048
  15. PREGABALIN [Concomitant]
     Active Substance: PREGABALIN
     Indication: Neuralgia
     Dosage: 50 MG, BI
     Route: 048
  16. SARS-COV-2 VACCINE [Concomitant]
     Indication: Product used for unknown indication
     Dosage: UNK
     Route: 065

REACTIONS (3)
  - Myelosuppression [Recovering/Resolving]
  - Acute kidney injury [Recovering/Resolving]
  - Neutropenic sepsis [Unknown]

NARRATIVE: CASE EVENT DATE: 20210301
